FAERS Safety Report 5851883-X (Version None)
Quarter: 2008Q3

REPORT INFORMATION
  Report Type: 
  Country: None (occurrence: None)
  Receive Date: 20080820
  Receipt Date: 20080613
  Transmission Date: 20090109
  Serious: Yes (Hospitalization)
  Sender: FDA-Public Use
  Company Number: BE-PFIZER INC-2008051264

PATIENT
  Sex: Female
  Weight: 54 kg

DRUGS (2)
  1. EXUBERA [Suspect]
     Route: 055
  2. CORTISONE [Suspect]
     Indication: HERNIA

REACTIONS (1)
  - BLOOD GLUCOSE FLUCTUATION [None]
